FAERS Safety Report 7248744-0 (Version None)
Quarter: 2011Q1

REPORT INFORMATION
  Report Type: 
  Country: None (occurrence: None)
  Receive Date: 20110128
  Receipt Date: 20110123
  Transmission Date: 20110831
  Serious: Yes (Death)
  Sender: FDA-Public Use
  Company Number: US-BAYER-2011-008861

PATIENT
  Sex: Female

DRUGS (1)
  1. INTERFERON BETA-1B [Suspect]
     Indication: RELAPSING-REMITTING MULTIPLE SCLEROSIS
     Dosage: 8 MIU, QOD
     Route: 058
     Dates: start: 19940819, end: 20101220

REACTIONS (3)
  - PANCREATIC CYST [None]
  - HAEMORRHAGE [None]
  - CYST RUPTURE [None]
